FAERS Safety Report 4438826-0 (Version None)
Quarter: 2004Q3

REPORT INFORMATION
  Report Type: 
  Country: None (occurrence: None)
  Receive Date: 20040901
  Receipt Date: 20040824
  Transmission Date: 20050211
  Serious: Yes (Hospitalization)
  Sender: FDA-Public Use
  Company Number: PHEH2004US09173

PATIENT
  Age: 71 Year
  Sex: Male

DRUGS (5)
  1. LOPRESSOR [Suspect]
     Indication: HYPERTENSION
     Dosage: 75MG QAM; 50MG QPM
     Route: 048
     Dates: start: 20020601
  2. LOTENSIN [Suspect]
     Indication: HYPERTENSION
     Dosage: 5 MG, BID
     Route: 048
     Dates: start: 20020601
  3. FUROSEMIDE [Concomitant]
     Indication: CARDIAC FAILURE CONGESTIVE
     Dosage: 80 MG, UNK
     Dates: start: 20020601
  4. MULTIVITAMIN [Concomitant]
  5. MAGNESIUM SULFATE [Concomitant]

REACTIONS (4)
  - ANAEMIA [None]
  - GASTROINTESTINAL HAEMORRHAGE [None]
  - HAEMOGLOBIN DECREASED [None]
  - WHOLE BLOOD TRANSFUSION [None]
